FAERS Safety Report 5984496-X (Version None)
Quarter: 2008Q4

REPORT INFORMATION
  Report Type: 
  Country: None (occurrence: None)
  Receive Date: 20081208
  Receipt Date: 20081202
  Transmission Date: 20090506
  Serious: Yes (Other)
  Sender: FDA-Public Use
  Company Number: US-GENENTECH-265045

PATIENT
  Age: 21 Year
  Sex: Male

DRUGS (1)
  1. RITUXAN [Suspect]
     Indication: DRUG USE FOR UNKNOWN INDICATION
     Dosage: UNK
     Route: 042
     Dates: start: 20080201

REACTIONS (1)
  - HAEMATOCRIT DECREASED [None]
